FAERS Safety Report 18732884 (Version 2)
Quarter: 2021Q3

REPORT INFORMATION
  Report Type: Spontaneous
  Country: CA (occurrence: CA)
  Receive Date: 20210112
  Receipt Date: 20210704
  Transmission Date: 20211014
  Serious: Yes (Other)
  Sender: FDA-Public Use
  Company Number: CA-JNJFOC-20210112878

PATIENT
  Age: 34 Year
  Sex: Male

DRUGS (3)
  1. INDOMETHACIN [INDOMETACIN] [Concomitant]
     Active Substance: INDOMETHACIN
  2. PANTOLOC [PANTOPRAZOLE] [Concomitant]
     Active Substance: PANTOPRAZOLE SODIUM
  3. REMICADE [Suspect]
     Active Substance: INFLIXIMAB
     Indication: ANKYLOSING SPONDYLITIS
     Route: 042

REACTIONS (8)
  - Throat irritation [Unknown]
  - Ear discomfort [Unknown]
  - Sinus pain [Unknown]
  - Dry throat [Unknown]
  - Paraesthesia oral [Unknown]
  - Lymph node pain [Unknown]
  - Ear infection bacterial [Unknown]
  - Blood pressure increased [Unknown]
